FAERS Safety Report 13645303 (Version 1)
Quarter: 2017Q2

REPORT INFORMATION
  Report Type: Spontaneous
  Country: US (occurrence: US)
  Receive Date: 20170612
  Receipt Date: 20170612
  Transmission Date: 20170830
  Serious: No
  Sender: FDA-Public Use
  Company Number: US-ROCHE-1447532

PATIENT
  Age: 69 Year
  Sex: Female

DRUGS (1)
  1. XELODA [Suspect]
     Active Substance: CAPECITABINE
     Indication: NEOPLASM MALIGNANT
     Dosage: 500 MG 3 TABS, 14 DAYS ON, 7 OFF
     Route: 048
     Dates: start: 20140729

REACTIONS (12)
  - Abdominal cavity drainage [Unknown]
  - Ascites [Unknown]
  - Hypoaesthesia oral [Not Recovered/Not Resolved]
  - Drug dose omission [Unknown]
  - Somnolence [Unknown]
  - Vomiting [Recovered/Resolved]
  - Fatigue [Unknown]
  - Influenza [Unknown]
  - Myalgia [Unknown]
  - Dyspnoea [Unknown]
  - Glossodynia [Not Recovered/Not Resolved]
  - Palmar-plantar erythrodysaesthesia syndrome [Not Recovered/Not Resolved]

NARRATIVE: CASE EVENT DATE: 20140904
